FAERS Safety Report 21365842 (Version 1)
Quarter: 2022Q3

REPORT INFORMATION
  Report Type: Spontaneous
  Country: US (occurrence: US)
  Receive Date: 20220922
  Receipt Date: 20220922
  Transmission Date: 20221026
  Serious: Yes (Death)
  Sender: FDA-Public Use
  Company Number: US-TEVA-2022-US-2074097

PATIENT

DRUGS (3)
  1. PACLITAXEL [Suspect]
     Active Substance: PACLITAXEL
     Indication: Head and neck cancer
     Route: 065
  2. CARBOPLATIN [Suspect]
     Active Substance: CARBOPLATIN
     Indication: Head and neck cancer
     Route: 065
  3. CETUXIMAB [Suspect]
     Active Substance: CETUXIMAB
     Indication: Head and neck cancer
     Route: 065

REACTIONS (1)
  - Drug ineffective [Fatal]
